FAERS Safety Report 9933965 (Version 1)
Quarter: 2014Q1

REPORT INFORMATION
  Report Type: Spontaneous
  Country: US (occurrence: US)
  Receive Date: 20140228
  Receipt Date: 20140228
  Transmission Date: 20141002
  Serious: No
  Sender: FDA-Public Use
  Company Number: US-ABBVIE-14P-163-1198616-00

PATIENT
  Age: 58 Year
  Sex: Male
  Weight: 118.04 kg

DRUGS (3)
  1. ANDROGEL [Suspect]
     Indication: BLOOD TESTOSTERONE DECREASED
     Dates: start: 20140107
  2. ANDROGEL [Suspect]
     Dosage: 4 PUMP ACTUATIONS IN THE MORNING AND 2 PUMP ACTUATIONS IN THE EVENING
     Dates: start: 2014
  3. BLOOD PRESSURE MEDICATION [Concomitant]
     Indication: PRODUCT USED FOR UNKNOWN INDICATION

REACTIONS (3)
  - Somnolence [Recovering/Resolving]
  - Depression [Recovering/Resolving]
  - Therapy change [Recovered/Resolved]
